FAERS Safety Report 13189836 (Version 5)
Quarter: 2017Q3

REPORT INFORMATION
  Report Type: Spontaneous
  Country: IT (occurrence: IT)
  Receive Date: 20170206
  Receipt Date: 20170807
  Transmission Date: 20171127
  Serious: Yes (Death)
  Sender: FDA-Public Use
  Company Number: IT-JNJFOC-20170202862

PATIENT
  Age: 55 Year

DRUGS (3)
  1. ALLOPURINOL. [Concomitant]
     Active Substance: ALLOPURINOL
     Indication: PRODUCT USED FOR UNKNOWN INDICATION
  2. IMBRUVICA [Suspect]
     Active Substance: IBRUTINIB
     Indication: MANTLE CELL LYMPHOMA
     Route: 048
     Dates: start: 20161130, end: 20161227
  3. IMBRUVICA [Suspect]
     Active Substance: IBRUTINIB
     Indication: MANTLE CELL LYMPHOMA
     Route: 048
     Dates: start: 20161228, end: 20170123

REACTIONS (10)
  - Loss of consciousness [Unknown]
  - Peritoneal haemorrhage [Fatal]
  - Pyrexia [Recovered/Resolved]
  - Off label use [Unknown]
  - Malaise [Unknown]
  - Productive cough [Unknown]
  - Splenomegaly [Fatal]
  - Hyperpyrexia [Unknown]
  - Incorrect dose administered [Unknown]
  - Splenic rupture [Fatal]

NARRATIVE: CASE EVENT DATE: 20170123
